FAERS Safety Report 19489745 (Version 3)
Quarter: 2021Q3

REPORT INFORMATION
  Report Type: Spontaneous
  Country: US (occurrence: US)
  Receive Date: 20210704
  Receipt Date: 20210831
  Transmission Date: 20211014
  Serious: No
  Sender: FDA-Public Use
  Company Number: US-JNJFOC-20210663685

PATIENT
  Sex: Female

DRUGS (1)
  1. TREMFYA [Suspect]
     Active Substance: GUSELKUMAB
     Indication: PSORIASIS
     Route: 058

REACTIONS (4)
  - Wrong technique in product usage process [Unknown]
  - Drug delivery system malfunction [Unknown]
  - Psoriasis [Unknown]
  - Underdose [Unknown]

NARRATIVE: CASE EVENT DATE: 202106
